FAERS Safety Report 4290907-0 (Version None)
Quarter: 2004Q1

REPORT INFORMATION
  Report Type: 
  Country: None (occurrence: None)
  Receive Date: 20040209
  Receipt Date: 20040127
  Transmission Date: 20041129
  Serious: Yes (Other)
  Sender: FDA-Public Use
  Company Number: 2004005948

PATIENT
  Age: 12 Year
  Sex: Female
  Weight: 32.8 kg

DRUGS (1)
  1. SERTRALINE HCL [Suspect]
     Indication: DEPRESSION
     Dosage: 50 MG (DAILY), ORAL
     Route: 048
     Dates: start: 20030926, end: 20031202

REACTIONS (1)
  - NEUTROPENIA [None]
